FAERS Safety Report 8457783-3 (Version None)
Quarter: 2012Q2

REPORT INFORMATION
  Report Type: 
  Country: None (occurrence: None)
  Receive Date: 20120618
  Receipt Date: 20120618
  Transmission Date: 20120825
  Serious: Yes (Hospitalization)
  Sender: FDA-Public Use
  Company Number: None

PATIENT
  Sex: Male
  Weight: 101.8 kg

DRUGS (13)
  1. INSULIN [Concomitant]
  2. OMEPRAZOLE [Concomitant]
  3. VALACYCLOVIR HYDROCHLORIDE [Concomitant]
  4. ALLOPURINOL [Concomitant]
  5. VANCOMYCIN [Concomitant]
  6. DEXAMETHASONE [Suspect]
     Dosage: 1820 MG
  7. CYTARABINE [Suspect]
     Dosage: 70 MG
  8. BUPRENORPHINE HCL AND NALOXONE HCL [Concomitant]
  9. MOXIFLOXACIN [Concomitant]
  10. DAUNORUBICIN HCL [Suspect]
     Dosage: 110 MG
  11. PEG-L-ASPARAGINASE (K-H) [Suspect]
     Dosage: 5500 IU
  12. FLUCONAZOLE [Concomitant]
  13. VINCRISTINE [Suspect]
     Dosage: 4 MG

REACTIONS (9)
  - LETHARGY [None]
  - BLOOD SODIUM DECREASED [None]
  - BLOOD CREATININE INCREASED [None]
  - FAECAL INCONTINENCE [None]
  - BLOOD POTASSIUM INCREASED [None]
  - DIABETIC HYPEROSMOLAR COMA [None]
  - BLOOD BILIRUBIN INCREASED [None]
  - CONFUSIONAL STATE [None]
  - BLOOD GLUCOSE INCREASED [None]
